FAERS Safety Report 20107166 (Version 1)
Quarter: 2021Q4

REPORT INFORMATION
  Report Type: Spontaneous
  Country: GB (occurrence: GB)
  Receive Date: 20211124
  Receipt Date: 20211124
  Transmission Date: 20220303
  Serious: Yes (Hospitalization)
  Sender: FDA-Public Use
  Company Number: None

PATIENT
  Age: 79 Year
  Sex: Female
  Weight: 54 kg

DRUGS (6)
  1. RAMIPRIL [Suspect]
     Active Substance: RAMIPRIL
  2. ATORVASTATIN [Suspect]
     Active Substance: ATORVASTATIN
  3. BISOPROLOL [Suspect]
     Active Substance: BISOPROLOL
  4. PFIZER-BIONTECH COVID-19 VACCINE [Suspect]
     Active Substance: TOZINAMERAN
     Dosage: DOSE 2
     Dates: start: 20210402
  5. DAPAGLIFLOZIN [Suspect]
     Active Substance: DAPAGLIFLOZIN
  6. FUROSEMIDE [Suspect]
     Active Substance: FUROSEMIDE

REACTIONS (7)
  - Left ventricular dysfunction [Unknown]
  - Arteriosclerosis [Unknown]
  - Suspected COVID-19 [Unknown]
  - Cardiomyopathy [Not Recovered/Not Resolved]
  - Dyspnoea [Unknown]
  - Fatigue [Unknown]
  - Chest pain [Unknown]

NARRATIVE: CASE EVENT DATE: 20210601
